FAERS Safety Report 23374716 (Version 2)
Quarter: 2024Q1

REPORT INFORMATION
  Report Type: Spontaneous
  Country: IN (occurrence: IN)
  Receive Date: 20240105
  Receipt Date: 20240119
  Transmission Date: 20240410
  Serious: Yes (Death)
  Sender: FDA-Public Use
  Company Number: IN-HETERO-HET2023IN03763

PATIENT
  Age: 48 Year
  Sex: Male

DRUGS (4)
  1. IVABRADINE [Suspect]
     Active Substance: IVABRADINE
     Indication: Product used for unknown indication
     Dosage: 5 MG
     Route: 065
  2. PLANEP [Concomitant]
     Indication: Product used for unknown indication
     Dosage: UNK
     Route: 065
  3. ROSUMAC [Concomitant]
     Indication: Product used for unknown indication
     Dosage: UNK
     Route: 065
  4. BISOBIS [Concomitant]
     Indication: Product used for unknown indication
     Dosage: UNK
     Route: 065

REACTIONS (1)
  - Cardiac disorder [Fatal]
